FAERS Safety Report 6862626-5 (Version None)
Quarter: 2010Q3

REPORT INFORMATION
  Report Type: 
  Country: None (occurrence: None)
  Receive Date: 20100716
  Receipt Date: 20100702
  Transmission Date: 20110219
  Serious: Yes (Hospitalization)
  Sender: FDA-Public Use
  Company Number: 2010S1000201

PATIENT
  Age: 60 Year
  Sex: Male
  Weight: 75 kg

DRUGS (10)
  1. LIVALO [Suspect]
     Indication: DYSLIPIDAEMIA
     Dosage: 2 MG; 1X; PO
     Route: 048
     Dates: start: 20100220, end: 20100315
  2. METFORMIN HCL [Concomitant]
  3. GLUTAMEAL [Concomitant]
  4. METHYCOBAL /00324901/ [Concomitant]
  5. LOSARTAN POTASSIUM AND HYDROCHLOROTHIAZIDE [Concomitant]
  6. ATELEC [Concomitant]
  7. ASPIRIN [Concomitant]
  8. RABEPRAZOLE SODIUM [Concomitant]
  9. KAKKON-TO [Concomitant]
  10. LANTUS [Concomitant]

REACTIONS (6)
  - ASPARTATE AMINOTRANSFERASE INCREASED [None]
  - BLOOD CREATINE PHOSPHOKINASE INCREASED [None]
  - BLOOD LACTATE DEHYDROGENASE INCREASED [None]
  - CARDIAC FAILURE [None]
  - PULMONARY OEDEMA [None]
  - RESPIRATORY DISORDER [None]
